FAERS Safety Report 8344455-9 (Version None)
Quarter: 2012Q2

REPORT INFORMATION
  Report Type: 
  Country: None (occurrence: None)
  Receive Date: 20120508
  Receipt Date: 20120425
  Transmission Date: 20120825
  Serious: Yes (Other)
  Sender: FDA-Public Use
  Company Number: CA-ROCHE-1063374

PATIENT
  Sex: Male
  Weight: 104 kg

DRUGS (10)
  1. METHOTREXATE [Concomitant]
     Route: 058
  2. TYLENOL W/ CODEINE NO. 3 [Concomitant]
  3. ARAVA [Concomitant]
  4. ACTEMRA [Suspect]
     Indication: RHEUMATOID ARTHRITIS
     Dosage: DOSE INTERRUPTED
     Route: 042
     Dates: start: 20111101, end: 20120320
  5. ZYLOPRIM [Concomitant]
  6. CALCIUM NOS/VITAMIN D NOS [Concomitant]
  7. PREDNISONE TAB [Concomitant]
  8. ACTEMRA [Suspect]
     Route: 042
     Dates: start: 20111128
  9. AMLOPIDINE DURA [Concomitant]
  10. FOLIC ACID [Concomitant]

REACTIONS (2)
  - PROSTATOMEGALY [None]
  - BLOOD URINE PRESENT [None]
